FAERS Safety Report 4559077-5 (Version None)
Quarter: 2005Q1

REPORT INFORMATION
  Report Type: 
  Country: None (occurrence: None)
  Receive Date: 20050121
  Receipt Date: 20050121
  Transmission Date: 20050727
  Serious: Yes (Hospitalization)
  Sender: FDA-Public Use
  Company Number: None

PATIENT
  Age: 44 Year
  Sex: Male
  Weight: 76.6579 kg

DRUGS (1)
  1. LAMIVUDINE AND ZIDOVUDINE [Suspect]
     Indication: HIV INFECTION
     Dosage: BID   ORAL
     Route: 048
     Dates: start: 20040325, end: 20050113

REACTIONS (2)
  - ANAEMIA [None]
  - ASTHENIA [None]
